FAERS Safety Report 11196595 (Version 1)
Quarter: 2015Q2

REPORT INFORMATION
  Report Type: Report from Study
  Country: US (occurrence: US)
  Receive Date: 20150617
  Receipt Date: 20150617
  Transmission Date: 20150821
  Serious: Yes (Other)
  Sender: FDA-Public Use
  Company Number: US-PFIZER INC-2015197997

PATIENT

DRUGS (3)
  1. TIGECYCLINE [Suspect]
     Active Substance: TIGECYCLINE
  2. SULFAMETHOXAZOLE/TRIMETHOPRIM [Suspect]
     Active Substance: SULFAMETHOXAZOLE\TRIMETHOPRIM
  3. HYDRALAZINE [Suspect]
     Active Substance: HYDRALAZINE HYDROCHLORIDE

REACTIONS (3)
  - Liver injury [Unknown]
  - Drug-induced liver injury [None]
  - Hepatotoxicity [None]
